FAERS Safety Report 13644480 (Version 1)
Quarter: 2017Q2

REPORT INFORMATION
  Report Type: Spontaneous
  Country: US (occurrence: US)
  Receive Date: 20170612
  Receipt Date: 20170612
  Transmission Date: 20170830
  Serious: No
  Sender: FDA-Public Use
  Company Number: US-ROCHE-1307542

PATIENT
  Sex: Male

DRUGS (9)
  1. XELODA [Suspect]
     Active Substance: CAPECITABINE
     Route: 065
     Dates: start: 20131004
  2. LIPITOR [Concomitant]
     Active Substance: ATORVASTATIN CALCIUM
  3. XANAX [Concomitant]
     Active Substance: ALPRAZOLAM
  4. DOXEPIN [Concomitant]
     Active Substance: DOXEPIN
  5. XELODA [Suspect]
     Active Substance: CAPECITABINE
     Dosage: EVERY MORNING 7 DAYS EVERY 14 DAYS
     Route: 048
     Dates: start: 20131205
  6. ATORVASTATIN [Concomitant]
     Active Substance: ATORVASTATIN
  7. XELODA [Suspect]
     Active Substance: CAPECITABINE
     Indication: COLON CANCER
     Dosage: 3 IN MORNING, 2 IN EVENING, 14 DAYS ON, 7 DAYS OFF
     Route: 065
     Dates: start: 20131003
  8. PRILOSEC [Concomitant]
     Active Substance: OMEPRAZOLE MAGNESIUM
  9. OMEPRAZOLE. [Concomitant]
     Active Substance: OMEPRAZOLE

REACTIONS (3)
  - Dry skin [Unknown]
  - Skin fissures [Unknown]
  - Laceration [Not Recovered/Not Resolved]
